FAERS Safety Report 22093859 (Version 1)
Quarter: 2023Q1

REPORT INFORMATION
  Report Type: Spontaneous
  Country: US (occurrence: US)
  Receive Date: 20230314
  Receipt Date: 20230314
  Transmission Date: 20230417
  Serious: Yes (Other)
  Sender: FDA-Public Use
  Company Number: US-002147023-NVSC2023US058450

PATIENT
  Age: 14 Year
  Sex: Male

DRUGS (1)
  1. NELARABINE [Suspect]
     Active Substance: NELARABINE
     Indication: Precursor T-lymphoblastic leukaemia acute
     Dosage: UNK
     Route: 065

REACTIONS (7)
  - Precursor T-lymphoblastic leukaemia acute [Unknown]
  - Malignant neoplasm progression [Unknown]
  - Seizure [Unknown]
  - Encephalopathy [Unknown]
  - Posterior reversible encephalopathy syndrome [Recovered/Resolved]
  - Toxic leukoencephalopathy [Unknown]
  - Drug ineffective [Unknown]
